FAERS Safety Report 24692304 (Version 1)
Quarter: 2024Q4

REPORT INFORMATION
  Report Type: Report from Study
  Country: GB (occurrence: GB)
  Receive Date: 20241203
  Receipt Date: 20241203
  Transmission Date: 20250115
  Serious: Yes (Hospitalization)
  Sender: NOVARTIS
  Company Number: GB-002147023-NVSC2024GB227842

PATIENT
  Age: 58 Year
  Sex: Male
  Weight: 106 kg

DRUGS (13)
  1. COSENTYX [Suspect]
     Active Substance: SECUKINUMAB
     Indication: Psoriatic arthropathy
     Dosage: 150 MG, QMO
     Route: 058
  2. COSENTYX [Suspect]
     Active Substance: SECUKINUMAB
     Dosage: 300 MG
     Route: 058
     Dates: start: 202211
  3. CO-DYDRAMOL [Concomitant]
     Active Substance: ACETAMINOPHEN\DIHYDROCODEINE
     Indication: Product used for unknown indication
     Dosage: UNK, QID (1 OR 2 TABLETS)
     Route: 065
     Dates: start: 20160818, end: 20240910
  4. TRAZODONE [Concomitant]
     Active Substance: TRAZODONE HYDROCHLORIDE
     Indication: Product used for unknown indication
     Dosage: 1 DOSAGE FORM, QD (3 CAPSULES, AT NIGHT)
     Route: 065
     Dates: start: 20240724, end: 20240910
  5. GABAPENTIN [Concomitant]
     Active Substance: GABAPENTIN
     Indication: Product used for unknown indication
     Dosage: 1000 MG, TID(TAKE 2 CAPSULES MORNING, TEATIME AND BEADTIME)
     Route: 065
     Dates: start: 20240315, end: 20240910
  6. GABAPENTIN [Concomitant]
     Active Substance: GABAPENTIN
     Dosage: 1000 MG, TID (STRENGTH 100 MG)(TAKE 2 CAPSULES MORNING, TEATIME AND BEADTIME)
     Route: 065
     Dates: start: 20240315, end: 20240910
  7. SIMVASTATIN [Concomitant]
     Active Substance: SIMVASTATIN
     Indication: Product used for unknown indication
     Dosage: UNK, QD (1 TABLET ONCE NIGHTLY)
     Route: 065
     Dates: start: 20240724, end: 20240910
  8. NAPROXEN [Concomitant]
     Active Substance: NAPROXEN
     Indication: Product used for unknown indication
     Dosage: 1 TABLET MORNING AND TEATIME, CRUSH IN WATER BEFORE TAKING IT
     Route: 065
     Dates: start: 20240724, end: 20240910
  9. MIRTAZAPINE [Concomitant]
     Active Substance: MIRTAZAPINE
     Indication: Product used for unknown indication
     Dosage: 1 DOSAGE FORM, QD (1 TABLET AT NIGHT)
     Route: 065
     Dates: start: 20160428, end: 20240910
  10. LANSOPRAZOLE [Concomitant]
     Active Substance: LANSOPRAZOLE
     Indication: Product used for unknown indication
     Dosage: 2 DOSAGE FORM, QD (2 CAPSULES IN MORNING)
     Route: 065
     Dates: start: 20240724, end: 20240910
  11. ATENOLOL [Concomitant]
     Active Substance: ATENOLOL
     Indication: Product used for unknown indication
     Dosage: 1 DOSAGE FORM, QD (1 TABLET AT NIGHT)
     Route: 065
     Dates: start: 20240724, end: 20240910
  12. AMITRIPTYLINE [Concomitant]
     Active Substance: AMITRIPTYLINE
     Indication: Product used for unknown indication
     Dosage: 3 DOSAGE FORM, QD 3 TABLET AT NIGHT)
     Route: 065
     Dates: start: 20240724, end: 20240910
  13. SILDENAFIL [Concomitant]
     Active Substance: SILDENAFIL
     Indication: Product used for unknown indication
     Dosage: 0.5 DOSAGE FORM (HALF TABLET AS DIRECTED)
     Route: 065
     Dates: start: 20180607, end: 20240910

REACTIONS (1)
  - Cellulitis [Recovered/Resolved]

NARRATIVE: CASE EVENT DATE: 20240918
